FAERS Safety Report 24776465 (Version 2)
Quarter: 2025Q1

REPORT INFORMATION
  Report Type: Report from Study
  Country: US (occurrence: US)
  Receive Date: 20241226
  Receipt Date: 20250114
  Transmission Date: 20250409
  Serious: Yes (Hospitalization)
  Sender: ASTELLAS
  Company Number: US-ASTELLAS-2024-AER-020932

PATIENT
  Age: 55 Year
  Sex: Female

DRUGS (3)
  1. FEZOLINETANT [Suspect]
     Active Substance: FEZOLINETANT
     Indication: Hot flush
     Route: 065
     Dates: start: 20230329
  2. FEZOLINETANT [Suspect]
     Active Substance: FEZOLINETANT
     Route: 065
     Dates: start: 202411
  3. METOPROLOL [Suspect]
     Active Substance: METOPROLOL
     Indication: Palpitations
     Route: 065

REACTIONS (6)
  - Palpitations [Unknown]
  - Headache [Recovering/Resolving]
  - Flatulence [Recovering/Resolving]
  - Defaecation urgency [Recovering/Resolving]
  - Nausea [Unknown]
  - Abdominal discomfort [Unknown]

NARRATIVE: CASE EVENT DATE: 20240401
